FAERS Safety Report 4651076-8 (Version None)
Quarter: 2005Q2

REPORT INFORMATION
  Report Type: 
  Country: None (occurrence: None)
  Receive Date: 20050503
  Receipt Date: 20050426
  Transmission Date: 20051028
  Serious: Yes (Other)
  Sender: FDA-Public Use
  Company Number: PHBS2005JP05974

PATIENT
  Age: 36 Year
  Sex: Male

DRUGS (3)
  1. VOLTAREN [Suspect]
     Indication: HEADACHE
     Dosage: 50 MG/DAY
     Route: 054
     Dates: start: 20010126
  2. IBUPROFEN [Suspect]
     Indication: PYREXIA
     Route: 048
     Dates: start: 20010124
  3. LEVOFLOXACIN [Concomitant]
     Indication: PYREXIA
     Dosage: 300 MG/DAY
     Route: 048
     Dates: start: 20010124

REACTIONS (3)
  - ENCEPHALOPATHY [None]
  - MENINGITIS ASEPTIC [None]
  - RASH [None]
